FAERS Safety Report 24326289 (Version 1)
Quarter: 2024Q3

REPORT INFORMATION
  Report Type: Report from Study
  Country: PK (occurrence: PK)
  Receive Date: 20240917
  Receipt Date: 20240917
  Transmission Date: 20241016
  Serious: Yes (Death)
  Sender: ROCHE
  Company Number: PK-ROCHE-10000080762

PATIENT
  Age: 56 Year
  Sex: Female

DRUGS (1)
  1. HERCEPTIN [Suspect]
     Active Substance: TRASTUZUMAB
     Indication: Breast cancer metastatic
     Route: 042
     Dates: start: 20240531, end: 20240815

REACTIONS (1)
  - Hepatic failure [Fatal]
